FAERS Safety Report 18620939 (Version 1)
Quarter: 2020Q4

REPORT INFORMATION
  Report Type: Spontaneous
  Country: US (occurrence: US)
  Receive Date: 20201215
  Receipt Date: 20201215
  Transmission Date: 20210114
  Serious: No
  Sender: FDA-Public Use
  Company Number: US-KALEO, INC.-2020KL000121

PATIENT
  Age: 26 Year
  Sex: Female

DRUGS (1)
  1. AUVI-Q [Suspect]
     Active Substance: EPINEPHRINE
     Dates: start: 20201112, end: 20201112

REACTIONS (5)
  - Accidental exposure to product [Recovered/Resolved]
  - Skin discolouration [Recovered/Resolved]
  - Device issue [Unknown]
  - Peripheral swelling [Recovered/Resolved]
  - Device safety feature issue [Unknown]

NARRATIVE: CASE EVENT DATE: 20201112
